FAERS Safety Report 22141340 (Version 1)
Quarter: 2023Q1

REPORT INFORMATION
  Report Type: Spontaneous
  Country: US (occurrence: None)
  Receive Date: 20230325
  Receipt Date: 20230325
  Transmission Date: 20230418
  Serious: Yes (Other)
  Sender: FDA-Public Use
  Company Number: None

PATIENT
  Age: 58 Year
  Sex: Female
  Weight: 78.3 kg

DRUGS (5)
  1. ROSUVASTATIN [Suspect]
     Active Substance: ROSUVASTATIN
     Indication: Blood cholesterol increased
     Dosage: OTHER QUANTITY : 30 TABLET(S)?FREQUENCY : DAILY?
     Route: 048
     Dates: start: 20230314, end: 20230319
  2. VITAMIN D [Concomitant]
     Active Substance: VITAMIN D NOS
  3. TUMERIC  SUPPLEMENT [Concomitant]
  4. ASHWAGANDHA  SUPPLEMENT [Concomitant]
  5. ZINC  SUPPLEMENT [Concomitant]

REACTIONS (5)
  - Product substitution issue [None]
  - Petechiae [None]
  - Rash [None]
  - Drug ineffective [None]
  - Product formulation issue [None]

NARRATIVE: CASE EVENT DATE: 20230314
